FAERS Safety Report 8073995-5 (Version None)
Quarter: 2012Q1

REPORT INFORMATION
  Report Type: 
  Country: None (occurrence: None)
  Receive Date: 20120126
  Receipt Date: 20120116
  Transmission Date: 20120608
  Serious: Yes (Other)
  Sender: FDA-Public Use
  Company Number: US-ELI_LILLY_AND_COMPANY-US201108002577

PATIENT
  Age: 66 Year
  Sex: Male

DRUGS (16)
  1. WARFARIN SODIUM [Concomitant]
  2. FLOMAX [Concomitant]
  3. FOLIC ACID [Concomitant]
     Dosage: 1 MG, QD
     Route: 048
  4. ALMAX [Concomitant]
  5. ELAVIL [Concomitant]
  6. ALIMTA [Suspect]
     Indication: NON-SMALL CELL LUNG CANCER
     Dosage: UNK
  7. DOCUSATE [Concomitant]
  8. NORCO [Concomitant]
  9. VITAMIN B-12 [Concomitant]
     Dosage: 1000 MG, UNK
     Dates: start: 20110708
  10. CORTICOSTEROID NOS [Concomitant]
  11. ATROVENT [Concomitant]
  12. NORVASC [Concomitant]
  13. REGULAN [Concomitant]
  14. FOLVITE [Concomitant]
  15. ENOXAPARIN [Concomitant]
  16. PROTONIL [Concomitant]

REACTIONS (3)
  - RASH PRURITIC [None]
  - HOSPICE CARE [None]
  - SKIN DISCOLOURATION [None]
